FAERS Safety Report 4404526-6 (Version None)
Quarter: 2004Q3

REPORT INFORMATION
  Report Type: 
  Country: None (occurrence: None)
  Receive Date: 20040721
  Receipt Date: 20040721
  Transmission Date: 20050211
  Serious: Yes (Hospitalization)
  Sender: FDA-Public Use
  Company Number: None

PATIENT
  Age: 83 Year
  Sex: Male

DRUGS (5)
  1. IBUPROFEN [Suspect]
     Dosage: 800 MG TID
  2. SPIRONOLACTONE [Concomitant]
  3. LASIX [Concomitant]
  4. GLIPIZIDE [Concomitant]
  5. PROPRANDOL [Concomitant]

REACTIONS (1)
  - GASTROINTESTINAL HAEMORRHAGE [None]
